FAERS Safety Report 5532273-6 (Version None)
Quarter: 2007Q4

REPORT INFORMATION
  Report Type: 
  Country: None (occurrence: None)
  Receive Date: 20071203
  Receipt Date: 20071127
  Transmission Date: 20080405
  Serious: Yes (Hospitalization, Other)
  Sender: FDA-Public Use
  Company Number: US-ASTRAZENECA-2007UW23544

PATIENT
  Age: 67 Year
  Sex: Male
  Weight: 86.4 kg

DRUGS (6)
  1. PRILOSEC OTC [Suspect]
     Indication: GASTROOESOPHAGEAL REFLUX DISEASE
     Route: 048
     Dates: start: 20060829, end: 20070913
  2. PREVACID [Concomitant]
     Dates: start: 20060731
  3. CARAFATE [Concomitant]
  4. AVODART [Concomitant]
     Indication: BENIGN PROSTATIC HYPERPLASIA
     Dates: start: 20061204
  5. HYTRIN [Concomitant]
     Indication: BENIGN PROSTATIC HYPERPLASIA
  6. FOLIC ACID [Concomitant]

REACTIONS (11)
  - ACUTE SINUSITIS [None]
  - CHEST PAIN [None]
  - FACE OEDEMA [None]
  - FLUID RETENTION [None]
  - GENERALISED OEDEMA [None]
  - PARAESTHESIA [None]
  - PERICARDIAL EFFUSION [None]
  - PHARYNGEAL OEDEMA [None]
  - PHARYNGOLARYNGEAL PAIN [None]
  - SWOLLEN TONGUE [None]
  - TEMPORAL ARTERITIS [None]
